FAERS Safety Report 18325067 (Version 3)
Quarter: 2021Q1

REPORT INFORMATION
  Report Type: Report from Study
  Country: US (occurrence: US)
  Receive Date: 20200929
  Receipt Date: 20210224
  Transmission Date: 20210419
  Serious: No
  Sender: FDA-Public Use
  Company Number: US-IPSEN BIOPHARMACEUTICALS, INC.-2020-10530

PATIENT
  Age: 15 Year
  Sex: Male

DRUGS (2)
  1. DYSPORT [Suspect]
     Active Substance: ABOBOTULINUMTOXINA
     Indication: OFF LABEL USE
  2. DYSPORT [Suspect]
     Active Substance: ABOBOTULINUMTOXINA
     Indication: SPINA BIFIDA
     Dosage: 300 UNITS (BILATERAL LOWER EXTREMITIES)
     Route: 065
     Dates: start: 20200318, end: 20200318

REACTIONS (3)
  - Decubitus ulcer [Unknown]
  - Joint stiffness [Unknown]
  - Off label use [Unknown]

NARRATIVE: CASE EVENT DATE: 2020
